FAERS Safety Report 12699799 (Version 1)
Quarter: 2016Q3

REPORT INFORMATION
  Report Type: Report from Study
  Country: CA (occurrence: CA)
  Receive Date: 20160830
  Receipt Date: 20160830
  Transmission Date: 20161109
  Serious: Yes (Hospitalization)
  Sender: FDA-Public Use
  Company Number: CA-JNJFOC-20160517431

PATIENT
  Age: 73 Year
  Sex: Male
  Weight: 79.5 kg

DRUGS (26)
  1. REMICADE [Suspect]
     Active Substance: INFLIXIMAB
     Indication: CROHN^S DISEASE
     Route: 042
     Dates: start: 20160614
  2. RISEDRONATE [Concomitant]
     Active Substance: RISEDRONATE SODIUM
     Route: 065
  3. POTASSIUM [Concomitant]
     Active Substance: POTASSIUM
     Route: 065
  4. OLMETEC [Concomitant]
     Active Substance: OLMESARTAN MEDOXOMIL
     Route: 065
  5. PROPAFENONE. [Concomitant]
     Active Substance: PROPAFENONE
     Route: 048
  6. METOPROLOL. [Concomitant]
     Active Substance: METOPROLOL
     Route: 048
  7. MYCOPHENOLATE [Concomitant]
     Active Substance: MYCOPHENOLIC ACID
     Route: 048
  8. WARFARIN [Concomitant]
     Active Substance: WARFARIN
     Route: 065
  9. DIGOXIN. [Concomitant]
     Active Substance: DIGOXIN
     Route: 048
  10. EPREX [Concomitant]
     Active Substance: ERYTHROPOIETIN
     Dosage: 8000 UNITS TWICE A WEEK ON DIALYSIS DAYS
     Route: 065
  11. REMICADE [Suspect]
     Active Substance: INFLIXIMAB
     Indication: CROHN^S DISEASE
     Route: 042
  12. ALLOPURINOL. [Concomitant]
     Active Substance: ALLOPURINOL
     Route: 048
  13. MAGNESIUM [Concomitant]
     Active Substance: MAGNESIUM
     Route: 065
  14. VERAPAMIL [Concomitant]
     Active Substance: VERAPAMIL HYDROCHLORIDE
     Route: 048
  15. CLONIDINE. [Concomitant]
     Active Substance: CLONIDINE
     Route: 065
  16. MYCOPHENOLATE [Concomitant]
     Active Substance: MYCOPHENOLIC ACID
     Route: 048
  17. SPIRONOLACTONE. [Concomitant]
     Active Substance: SPIRONOLACTONE
     Route: 048
  18. TYLENOL WITH CODEINE [Concomitant]
     Active Substance: ACETAMINOPHEN\CODEINE PHOSPHATE
     Route: 048
  19. CALCIUM [Concomitant]
     Active Substance: CALCIUM
     Route: 065
  20. REMICADE [Suspect]
     Active Substance: INFLIXIMAB
     Indication: CROHN^S DISEASE
     Route: 042
     Dates: start: 20160503
  21. REMICADE [Suspect]
     Active Substance: INFLIXIMAB
     Indication: CROHN^S DISEASE
     Route: 042
  22. ALLOPURINOL. [Concomitant]
     Active Substance: ALLOPURINOL
     Route: 048
  23. PREDNISONE. [Concomitant]
     Active Substance: PREDNISONE
     Route: 065
     Dates: end: 20160618
  24. RABEPRAZOLE [Concomitant]
     Active Substance: RABEPRAZOLE
     Route: 048
  25. ENOXAPARIN [Concomitant]
     Active Substance: ENOXAPARIN
     Route: 058
  26. LASIX [Concomitant]
     Active Substance: FUROSEMIDE
     Route: 048

REACTIONS (12)
  - Atrial fibrillation [Not Recovered/Not Resolved]
  - Dyspnoea [Unknown]
  - Renal impairment [Unknown]
  - Infusion related reaction [Unknown]
  - Oedema [Unknown]
  - Gout [Not Recovered/Not Resolved]
  - Hypertension [Unknown]
  - Pneumonia [Recovering/Resolving]
  - Hallucination [Unknown]
  - Somnolence [Unknown]
  - Fatigue [Unknown]
  - Cardiac monitoring [Unknown]

NARRATIVE: CASE EVENT DATE: 2016
